FAERS Safety Report 4347691-1 (Version None)
Quarter: 2004Q1

REPORT INFORMATION
  Report Type: 
  Country: None (occurrence: None)
  Receive Date: 20040325
  Receipt Date: 20040123
  Transmission Date: 20041129
  Serious: No
  Sender: FDA-Public Use
  Company Number: USA040157474

PATIENT
  Sex: Female

DRUGS (7)
  1. FORTEO [Suspect]
     Dates: start: 20040122
  2. ATENOLOL [Concomitant]
  3. DARVOCET-N 100 [Concomitant]
  4. NORTRIPTYLINE HCL [Concomitant]
  5. ZOCOR [Concomitant]
  6. DIOVAN HCT [Concomitant]
  7. COUMADIN [Concomitant]

REACTIONS (3)
  - PRURITUS GENERALISED [None]
  - RASH ERYTHEMATOUS [None]
  - URTICARIA [None]
